FAERS Safety Report 14572149 (Version 1)
Quarter: 2018Q1

REPORT INFORMATION
  Report Type: Spontaneous
  Country: NO (occurrence: NO)
  Receive Date: 20180226
  Receipt Date: 20180226
  Transmission Date: 20180509
  Serious: Yes (Hospitalization)
  Sender: FDA-Public Use
  Company Number: NO-MYLANLABS-2018M1012884

PATIENT
  Sex: Male
  Weight: 70 kg

DRUGS (2)
  1. LEPONEX [Suspect]
     Active Substance: CLOZAPINE
     Indication: PRODUCT USED FOR UNKNOWN INDICATION
     Dosage: 600 MG, PM
     Dates: start: 20030303, end: 20161111
  2. LEPONEX [Suspect]
     Active Substance: CLOZAPINE
     Dosage: UNK

REACTIONS (2)
  - Rebound effect [Not Recovered/Not Resolved]
  - Strabismus [Recovered/Resolved with Sequelae]

NARRATIVE: CASE EVENT DATE: 20060205
